FAERS Safety Report 9224452 (Version 1)
Quarter: 2013Q1

REPORT INFORMATION
  Report Type: Spontaneous
  Country: US (occurrence: None)
  Receive Date: 20120925
  Receipt Date: 20120925
  Transmission Date: 20140127
  Serious: Yes (Other)
  Sender: FDA-Public Use
  Company Number: 1202USA02782

PATIENT
  Age: 17 Month
  Sex: Male
  Weight: 10 kg

DRUGS (3)
  1. SINGULAIR [Suspect]
     Indication: ASTHMA
     Route: 048
     Dates: end: 20120217
  2. ALBUTEROL - USP (WARRICK) (ALBUTEROL) [Concomitant]
  3. PULMICORT (BUDESONIDE) [Concomitant]

REACTIONS (2)
  - Convulsion [None]
  - Dyspnoea [None]
